FAERS Safety Report 6238156-0 (Version None)
Quarter: 2009Q2

REPORT INFORMATION
  Report Type: 
  Country: None (occurrence: None)
  Receive Date: 20090622
  Receipt Date: 20090618
  Transmission Date: 20091009
  Serious: Yes (Death, Other)
  Sender: FDA-Public Use
  Company Number: CA-JNJFOC-20040301625

PATIENT
  Sex: Male

DRUGS (3)
  1. DURAGESIC-100 [Suspect]
     Indication: OROPHARYNGEAL PAIN
     Route: 062
     Dates: start: 20040106, end: 20040107
  2. IBUPROFEN [Concomitant]
  3. PREDNISONE TAB [Concomitant]

REACTIONS (4)
  - ACCIDENTAL DEATH [None]
  - OFF LABEL USE [None]
  - RESPIRATORY ARREST [None]
  - UNRESPONSIVE TO STIMULI [None]
